FAERS Safety Report 10978863 (Version 1)
Quarter: 2015Q2

REPORT INFORMATION
  Report Type: Spontaneous
  Country: ES (occurrence: ES)
  Receive Date: 20150402
  Receipt Date: 20150402
  Transmission Date: 20150821
  Serious: Yes (Hospitalization)
  Sender: FDA-Public Use
  Company Number: ES-B.I. PHARMACEUTICALS,INC./RIDGEFIELD-2015-BI-16857ES

PATIENT
  Sex: Female

DRUGS (3)
  1. GILOTRIF [Suspect]
     Active Substance: AFATINIB
     Dosage: 20 MG
     Route: 065
  2. GILOTRIF [Suspect]
     Active Substance: AFATINIB
     Indication: EGFR GENE MUTATION
     Dosage: 30 MG
     Route: 065
  3. GILOTRIF [Suspect]
     Active Substance: AFATINIB
     Indication: NON-SMALL CELL LUNG CANCER
     Dosage: 40 MG
     Route: 065
     Dates: start: 201501

REACTIONS (1)
  - Hepatitis [Recovered/Resolved]

NARRATIVE: CASE EVENT DATE: 201501
